FAERS Safety Report 19567321 (Version 18)
Quarter: 2021Q4

REPORT INFORMATION
  Report Type: Report from Study
  Country: CN (occurrence: CN)
  Receive Date: 20210716
  Receipt Date: 20211004
  Transmission Date: 20220303
  Serious: Yes (Death, Life-Threatening)
  Sender: FDA-Public Use
  Company Number: NVSC2021CN158838

PATIENT
  Age: 52 Year
  Sex: Female
  Weight: 55 kg

DRUGS (97)
  1. ELTROMBOPAG [Suspect]
     Active Substance: ELTROMBOPAG
     Indication: Aplastic anaemia
     Dosage: 75 MG
     Route: 048
     Dates: start: 20210607
  2. NEORAL [Suspect]
     Active Substance: CYCLOSPORINE
     Indication: Aplastic anaemia
     Dosage: 200 MG
     Route: 048
     Dates: start: 20210607
  3. THYMOCYTE IMMUNE GLOBULIN NOS [Suspect]
     Active Substance: THYMOCYTE IMMUNE GLOBULIN NOS
     Indication: Aplastic anaemia
     Dosage: 165 MG
     Route: 065
     Dates: start: 20210607
  4. ETHAMSYLATE [Concomitant]
     Active Substance: ETHAMSYLATE
     Indication: Haemorrhage prophylaxis
     Dosage: UNK
     Route: 065
     Dates: start: 20210521
  5. PROMETHAZINE HYDROCHLORIDE [Concomitant]
     Active Substance: PROMETHAZINE HYDROCHLORIDE
     Indication: Prophylaxis
     Dosage: UNK
     Route: 065
     Dates: start: 20210607, end: 20210711
  6. PROMETHAZINE HYDROCHLORIDE [Concomitant]
     Active Substance: PROMETHAZINE HYDROCHLORIDE
     Indication: Allergy prophylaxis
     Dosage: UNK
     Route: 065
     Dates: start: 20210711, end: 20210711
  7. ACYCLOVIR [Concomitant]
     Active Substance: ACYCLOVIR
     Indication: Antiviral treatment
     Dosage: UNK
     Route: 065
     Dates: start: 20210607
  8. ACYCLOVIR [Concomitant]
     Active Substance: ACYCLOVIR
     Indication: Oral infection
     Dosage: UNK (EYE DROPS)
     Route: 065
     Dates: start: 20210625, end: 20210625
  9. ACYCLOVIR [Concomitant]
     Active Substance: ACYCLOVIR
     Dosage: UNK (EYE DROPS)
     Route: 065
     Dates: start: 20210628, end: 20210628
  10. MAGNESIUM ISOGLYCYRRHIZINATE [Concomitant]
     Active Substance: MAGNESIUM ISOGLYCYRRHIZINATE
     Indication: Alanine aminotransferase increased
     Dosage: UNK
     Route: 065
     Dates: start: 20210611
  11. MAGNESIUM ISOGLYCYRRHIZINATE [Concomitant]
     Active Substance: MAGNESIUM ISOGLYCYRRHIZINATE
     Indication: Aspartate aminotransferase increased
  12. TEPRENONE [Concomitant]
     Active Substance: TEPRENONE
     Indication: Gastrointestinal disorder
     Dosage: UNK
     Route: 065
     Dates: start: 20210705, end: 20210705
  13. METRONIDAZOLE [Concomitant]
     Active Substance: METRONIDAZOLE
     Indication: Oral infection
     Dosage: UNK
     Route: 065
     Dates: start: 20210615
  14. POTASSIUM CHLORIDE [Concomitant]
     Active Substance: POTASSIUM CHLORIDE
     Indication: Hypokalaemia
     Dosage: UNK
     Route: 065
     Dates: start: 20210620, end: 20210620
  15. POTASSIUM CHLORIDE [Concomitant]
     Active Substance: POTASSIUM CHLORIDE
     Dosage: UNK
     Route: 065
     Dates: start: 20210622, end: 20210622
  16. POTASSIUM CHLORIDE [Concomitant]
     Active Substance: POTASSIUM CHLORIDE
     Dosage: UNK
     Route: 065
     Dates: start: 20210626, end: 20210626
  17. POTASSIUM CHLORIDE [Concomitant]
     Active Substance: POTASSIUM CHLORIDE
     Dosage: UNK
     Route: 065
     Dates: start: 20210628, end: 20210628
  18. POTASSIUM CHLORIDE [Concomitant]
     Active Substance: POTASSIUM CHLORIDE
     Dosage: UNK
     Route: 065
     Dates: start: 20210630, end: 20210630
  19. POTASSIUM CHLORIDE [Concomitant]
     Active Substance: POTASSIUM CHLORIDE
     Dosage: UNK
     Route: 065
     Dates: start: 20210702, end: 20210702
  20. POTASSIUM CHLORIDE [Concomitant]
     Active Substance: POTASSIUM CHLORIDE
     Dosage: UNK
     Route: 065
     Dates: start: 20210706, end: 20210706
  21. POTASSIUM CHLORIDE [Concomitant]
     Active Substance: POTASSIUM CHLORIDE
     Dosage: UNK, EXTENDED RELEASE TABLET
     Route: 065
     Dates: start: 20210708
  22. POTASSIUM CHLORIDE [Concomitant]
     Active Substance: POTASSIUM CHLORIDE
     Dosage: 15 %
     Route: 065
     Dates: start: 20210709, end: 20210709
  23. POTASSIUM CHLORIDE [Concomitant]
     Active Substance: POTASSIUM CHLORIDE
     Dosage: 15%
     Route: 065
     Dates: start: 20210710, end: 20210710
  24. POTASSIUM CHLORIDE [Concomitant]
     Active Substance: POTASSIUM CHLORIDE
     Dosage: 15 %
     Route: 065
     Dates: start: 20210710, end: 20210711
  25. POTASSIUM CHLORIDE [Concomitant]
     Active Substance: POTASSIUM CHLORIDE
     Dosage: 15 %
     Route: 065
     Dates: start: 20210708, end: 20210708
  26. MAGNESIUM ASPARTATE\POTASSIUM ASPARTATE [Concomitant]
     Active Substance: MAGNESIUM ASPARTATE\POTASSIUM ASPARTATE
     Indication: Hypokalaemia
     Dosage: UNK
     Route: 065
     Dates: start: 20210620, end: 20210625
  27. RECOMBINANT HUMAN GRANULOCYTE COLONY STIMULAT [Concomitant]
     Indication: White blood cell count
     Dosage: UNK
     Route: 065
     Dates: start: 20210524
  28. RECOMBINANT HUMAN GRANULOCYTE COLONY STIMULAT [Concomitant]
     Indication: Oral infection
     Dosage: UNK
     Route: 065
     Dates: start: 20210706, end: 20210706
  29. RECOMBINANT HUMAN GRANULOCYTE COLONY STIMULAT [Concomitant]
     Dosage: UNK
     Route: 065
     Dates: start: 20210710, end: 20210710
  30. POVIDONE-IODINE [Concomitant]
     Active Substance: POVIDONE-IODINE
     Indication: Skin erosion
     Dosage: UNK
     Route: 065
     Dates: start: 20210525
  31. CHLORHEXIDINE [Concomitant]
     Active Substance: CHLORHEXIDINE
     Indication: Prophylaxis
     Dosage: UNK
     Route: 065
     Dates: start: 20210525
  32. SODIUM BICARBONATE [Concomitant]
     Active Substance: SODIUM BICARBONATE
     Indication: Antibiotic therapy
     Dosage: UNK
     Route: 065
     Dates: start: 20210527
  33. SODIUM CHLORIDE [Concomitant]
     Active Substance: SODIUM CHLORIDE
     Indication: Hyponatraemia
     Dosage: UNK
     Route: 065
     Dates: start: 20210621, end: 20210626
  34. SODIUM CHLORIDE [Concomitant]
     Active Substance: SODIUM CHLORIDE
     Dosage: UNK
     Route: 065
     Dates: start: 20210626, end: 20210627
  35. SODIUM CHLORIDE [Concomitant]
     Active Substance: SODIUM CHLORIDE
     Dosage: UNK
     Route: 065
     Dates: start: 20210627, end: 20210628
  36. SODIUM CHLORIDE [Concomitant]
     Active Substance: SODIUM CHLORIDE
     Dosage: UNK
     Route: 065
     Dates: start: 20210629, end: 20210702
  37. SODIUM CHLORIDE [Concomitant]
     Active Substance: SODIUM CHLORIDE
     Dosage: UNK
     Route: 065
     Dates: start: 20210702, end: 20210703
  38. SODIUM CHLORIDE [Concomitant]
     Active Substance: SODIUM CHLORIDE
     Dosage: UNK
     Route: 065
     Dates: start: 20210703, end: 20210703
  39. SODIUM CHLORIDE [Concomitant]
     Active Substance: SODIUM CHLORIDE
     Dosage: UNK
     Route: 065
     Dates: start: 20210705, end: 20210705
  40. SODIUM CHLORIDE [Concomitant]
     Active Substance: SODIUM CHLORIDE
     Dosage: UNK
     Route: 065
     Dates: start: 20210705, end: 20210708
  41. SODIUM CHLORIDE [Concomitant]
     Active Substance: SODIUM CHLORIDE
     Dosage: UNK
     Route: 065
     Dates: start: 20210708, end: 20210708
  42. ALBUMIN HUMAN [Concomitant]
     Active Substance: ALBUMIN HUMAN
     Indication: Hypoproteinaemia
     Dosage: UNK
     Route: 065
     Dates: start: 20210621, end: 20210621
  43. ALBUMIN HUMAN [Concomitant]
     Active Substance: ALBUMIN HUMAN
     Dosage: UNK
     Route: 065
     Dates: start: 20210626, end: 20210626
  44. ALBUMIN HUMAN [Concomitant]
     Active Substance: ALBUMIN HUMAN
     Dosage: UNK
     Route: 065
     Dates: start: 20210627, end: 20210627
  45. ALBUMIN HUMAN [Concomitant]
     Active Substance: ALBUMIN HUMAN
     Dosage: UNK
     Route: 065
     Dates: start: 20210629, end: 20210629
  46. ALBUMIN HUMAN [Concomitant]
     Active Substance: ALBUMIN HUMAN
     Dosage: UNK
     Route: 065
     Dates: start: 20210630, end: 20210630
  47. ALBUMIN HUMAN [Concomitant]
     Active Substance: ALBUMIN HUMAN
     Dosage: UNK
     Route: 065
     Dates: start: 20210701, end: 20210701
  48. ALBUMIN HUMAN [Concomitant]
     Active Substance: ALBUMIN HUMAN
     Dosage: UNK
     Route: 065
     Dates: start: 20210707, end: 20210707
  49. ALBUMIN HUMAN [Concomitant]
     Active Substance: ALBUMIN HUMAN
     Dosage: UNK
     Route: 065
     Dates: start: 20210708, end: 20210708
  50. ALBUMIN HUMAN [Concomitant]
     Active Substance: ALBUMIN HUMAN
     Dosage: UNK
     Route: 065
     Dates: start: 20210711, end: 20210711
  51. POTASSIUM ASPARTATE [Concomitant]
     Active Substance: POTASSIUM ASPARTATE
     Indication: Hypokalaemia
     Dosage: UNK
     Route: 065
     Dates: start: 20210621, end: 20210621
  52. POTASSIUM ASPARTATE [Concomitant]
     Active Substance: POTASSIUM ASPARTATE
     Dosage: UNK
     Route: 065
     Dates: start: 20210711, end: 20210711
  53. TORSEMIDE [Concomitant]
     Active Substance: TORSEMIDE
     Indication: Hypokalaemia
     Dosage: UNK
     Route: 065
     Dates: start: 20210621, end: 20210621
  54. TORSEMIDE [Concomitant]
     Active Substance: TORSEMIDE
     Indication: Diuretic therapy
     Dosage: UNK
     Route: 065
     Dates: start: 20210701, end: 20210701
  55. METHYLPREDNISOLONE [Concomitant]
     Active Substance: METHYLPREDNISOLONE
     Indication: Prophylaxis
     Dosage: UNK
     Route: 065
     Dates: start: 20210621, end: 20210624
  56. METHYLPREDNISOLONE [Concomitant]
     Active Substance: METHYLPREDNISOLONE
     Dosage: UNK
     Route: 065
     Dates: start: 20210624, end: 20210705
  57. METHYLPREDNISOLONE [Concomitant]
     Active Substance: METHYLPREDNISOLONE
     Dosage: UNK
     Route: 065
     Dates: start: 20210701, end: 20210701
  58. METHYLPREDNISOLONE [Concomitant]
     Active Substance: METHYLPREDNISOLONE
     Dosage: UNK
     Route: 065
     Dates: start: 20210707, end: 20210707
  59. NIFEDIPINE [Concomitant]
     Active Substance: NIFEDIPINE
     Indication: Hypertension
     Dosage: UNK
     Route: 065
     Dates: start: 20210623, end: 20210629
  60. NIFEDIPINE [Concomitant]
     Active Substance: NIFEDIPINE
     Dosage: UNK
     Route: 065
     Dates: start: 20210709, end: 20210709
  61. MONTMORILLONITE [Concomitant]
     Active Substance: MONTMORILLONITE
     Indication: Gastrointestinal disorder
     Dosage: UNK
     Route: 065
     Dates: start: 20210624, end: 20210627
  62. CHLORTETRACYCLINE HYDROCHLORIDE [Concomitant]
     Active Substance: CHLORTETRACYCLINE HYDROCHLORIDE
     Indication: Oral infection
     Dosage: UNK
     Route: 065
     Dates: start: 20210625, end: 20210625
  63. CHLORTETRACYCLINE HYDROCHLORIDE [Concomitant]
     Active Substance: CHLORTETRACYCLINE HYDROCHLORIDE
     Dosage: UNK
     Route: 065
     Dates: start: 20210701, end: 20210701
  64. CHLORTETRACYCLINE HYDROCHLORIDE [Concomitant]
     Active Substance: CHLORTETRACYCLINE HYDROCHLORIDE
     Dosage: UNK
     Route: 065
     Dates: start: 20210704
  65. CALCIUM GLUCONATE [Concomitant]
     Active Substance: CALCIUM GLUCONATE
     Indication: Hypocalcaemia
     Dosage: UNK
     Route: 065
     Dates: start: 20210626, end: 20210626
  66. IBUPROFEN [Concomitant]
     Active Substance: IBUPROFEN
     Indication: Sepsis
     Dosage: UNK
     Route: 065
     Dates: start: 20210627, end: 20210627
  67. IBUPROFEN [Concomitant]
     Active Substance: IBUPROFEN
     Dosage: UNK
     Route: 065
     Dates: start: 20210628, end: 20210628
  68. IBUPROFEN [Concomitant]
     Active Substance: IBUPROFEN
     Dosage: UNK
     Route: 065
     Dates: start: 20210629, end: 20210629
  69. DAPTOMYCIN [Concomitant]
     Active Substance: DAPTOMYCIN
     Indication: Sepsis
     Dosage: UNK
     Route: 065
     Dates: start: 20210627, end: 20210709
  70. CIPROFLOXACIN;SODIUM CHLORIDE [Concomitant]
     Indication: Sepsis
     Dosage: UNK
     Route: 065
     Dates: start: 20210628, end: 20210704
  71. CIPROFLOXACIN;SODIUM CHLORIDE [Concomitant]
     Dosage: UNK
     Route: 065
     Dates: start: 20210628, end: 20210710
  72. CIPROFLOXACIN LACTATE AND SODIUM CHLORIDE [Concomitant]
     Indication: Sepsis
     Dosage: UNK
     Route: 065
     Dates: start: 20210628, end: 20210710
  73. ADEMETIONINE [Concomitant]
     Active Substance: ADEMETIONINE
     Indication: Gamma-glutamyltransferase increased
     Dosage: UNK
     Route: 065
     Dates: start: 20210629
  74. ESTAZOLAM [Concomitant]
     Active Substance: ESTAZOLAM
     Indication: Sleep disorder
     Dosage: UNK
     Route: 065
     Dates: start: 20210704, end: 20210711
  75. AMPHOTERICIN B [Concomitant]
     Active Substance: AMPHOTERICIN B
     Indication: Antifungal treatment
     Dosage: UNK
     Route: 065
     Dates: start: 20210704, end: 20210704
  76. AMPHOTERICIN B [Concomitant]
     Active Substance: AMPHOTERICIN B
     Dosage: UNK
     Route: 065
     Dates: start: 20210705, end: 20210705
  77. AMPHOTERICIN B [Concomitant]
     Active Substance: AMPHOTERICIN B
     Dosage: UNK
     Route: 065
     Dates: start: 20210706, end: 20210706
  78. AMPHOTERICIN B [Concomitant]
     Active Substance: AMPHOTERICIN B
     Dosage: UNK
     Route: 065
     Dates: start: 20210707
  79. AMPHOTERICIN B [Concomitant]
     Active Substance: AMPHOTERICIN B
     Dosage: UNK
     Route: 065
     Dates: start: 20210710
  80. DEXAMETHASONE SODIUM PHOSPHATE [Concomitant]
     Active Substance: DEXAMETHASONE SODIUM PHOSPHATE
     Indication: Prophylaxis
     Dosage: UNK
     Route: 065
     Dates: start: 20210704, end: 20210704
  81. DEXAMETHASONE SODIUM PHOSPHATE [Concomitant]
     Active Substance: DEXAMETHASONE SODIUM PHOSPHATE
     Indication: Soft tissue infection
     Dosage: UNK
     Route: 065
     Dates: start: 20210708, end: 20210708
  82. DEXAMETHASONE SODIUM PHOSPHATE [Concomitant]
     Active Substance: DEXAMETHASONE SODIUM PHOSPHATE
     Dosage: UNK
     Route: 065
     Dates: start: 20210710, end: 20210710
  83. DEXAMETHASONE SODIUM PHOSPHATE [Concomitant]
     Active Substance: DEXAMETHASONE SODIUM PHOSPHATE
     Dosage: UNK
     Route: 065
     Dates: start: 20210711, end: 20210711
  84. DICLOFENAC SODIUM [Concomitant]
     Active Substance: DICLOFENAC SODIUM
     Indication: Antipyresis
     Dosage: UNK
     Route: 065
     Dates: start: 20210706, end: 20210706
  85. DICLOFENAC SODIUM [Concomitant]
     Active Substance: DICLOFENAC SODIUM
     Indication: Hyponatraemia
     Dosage: UNK
     Route: 065
     Dates: start: 20210706
  86. DICLOFENAC SODIUM [Concomitant]
     Active Substance: DICLOFENAC SODIUM
     Indication: Antibiotic therapy
     Dosage: UNK
     Route: 065
     Dates: start: 20210707, end: 20210707
  87. DICLOFENAC SODIUM [Concomitant]
     Active Substance: DICLOFENAC SODIUM
     Dosage: UNK
     Route: 065
     Dates: start: 20210711, end: 20210711
  88. LIDOCAINE HYDROCHLORIDE [Concomitant]
     Active Substance: LIDOCAINE HYDROCHLORIDE
     Indication: Anaesthesia
     Dosage: UNK
     Route: 065
     Dates: start: 20210707, end: 20210707
  89. MAGNESIUM SULFATE [Concomitant]
     Active Substance: MAGNESIUM SULFATE
     Indication: Soft tissue infection
     Dosage: UNK
     Route: 065
     Dates: start: 20210708, end: 20210708
  90. MAGNESIUM SULFATE [Concomitant]
     Active Substance: MAGNESIUM SULFATE
     Dosage: UNK
     Route: 065
     Dates: start: 20210710, end: 20210710
  91. MAGNESIUM SULFATE [Concomitant]
     Active Substance: MAGNESIUM SULFATE
     Dosage: UNK
     Route: 065
     Dates: start: 20210711, end: 20210711
  92. GENTAMICIN SULFATE [Concomitant]
     Active Substance: GENTAMICIN SULFATE
     Indication: Soft tissue infection
     Dosage: UNK
     Route: 065
     Dates: start: 20210710, end: 20210710
  93. GENTAMICIN SULFATE [Concomitant]
     Active Substance: GENTAMICIN SULFATE
     Indication: Vascular compression therapy
  94. VANCOMYCIN HYDROCHLORIDE [Concomitant]
     Active Substance: VANCOMYCIN HYDROCHLORIDE
     Indication: Sepsis
     Dosage: UNK
     Route: 065
     Dates: start: 20210709
  95. METHYLPREDNISOLONE SODIUM SUCCINATE [Concomitant]
     Active Substance: METHYLPREDNISOLONE SODIUM SUCCINATE
     Indication: Prophylaxis
     Dosage: UNK
     Route: 065
     Dates: start: 20210707, end: 20210707
  96. METHYLPREDNISOLONE SODIUM SUCCINATE [Concomitant]
     Active Substance: METHYLPREDNISOLONE SODIUM SUCCINATE
     Dosage: UNK
     Route: 065
     Dates: start: 20210711, end: 20210711
  97. OMEPRAZOLE SODIUM [Concomitant]
     Active Substance: OMEPRAZOLE SODIUM
     Indication: Gastrointestinal disorder prophylaxis
     Dosage: UNK
     Route: 065
     Dates: start: 20210711, end: 20210711

REACTIONS (1)
  - Sepsis [Fatal]

NARRATIVE: CASE EVENT DATE: 20210711
